FAERS Safety Report 8648981 (Version 2)
Quarter: 2015Q2

REPORT INFORMATION
  Report Type: Spontaneous
  Country: FR (occurrence: FR)
  Receive Date: 20120704
  Receipt Date: 20150416
  Transmission Date: 20150821
  Serious: Yes (Death, Other)
  Sender: FDA-Public Use
  Company Number: PHHY2012FR054932

PATIENT
  Age: 57 Year
  Sex: Male

DRUGS (1)
  1. IMATINIB [Suspect]
     Active Substance: IMATINIB
     Indication: CHRONIC MYELOID LEUKAEMIA

REACTIONS (5)
  - Diffuse large B-cell lymphoma [Fatal]
  - Second primary malignancy [Unknown]
  - Therapeutic response decreased [Unknown]
  - Hodgkin^s disease nodular sclerosis [Unknown]
  - Histiocytosis haematophagic [Unknown]
